FAERS Safety Report 9821771 (Version 1)
Quarter: 2014Q1

REPORT INFORMATION
  Report Type: Spontaneous
  Country: GB (occurrence: GB)
  Receive Date: 20140116
  Receipt Date: 20140116
  Transmission Date: 20141002
  Serious: Yes (Other)
  Sender: FDA-Public Use
  Company Number: GB-PFIZER INC-2014012365

PATIENT
  Age: 66 Year
  Sex: Female
  Weight: 65 kg

DRUGS (7)
  1. VENLAFAXINE HCL [Suspect]
     Indication: DEPRESSION
     Dosage: 75 MG, 1X/DAY
     Route: 048
     Dates: start: 20130911, end: 20130911
  2. VENLAFAXINE HCL [Suspect]
     Dosage: 3.75 MG, 2X/DAY
     Route: 048
  3. CLONAZEPAM [Concomitant]
     Dosage: UNK
  4. LEVOTHYROXINE [Concomitant]
     Dosage: UNK
  5. PREGABALIN [Concomitant]
     Dosage: UNK
  6. IPRATROPIUM [Concomitant]
     Dosage: UNK
  7. SALBUTAMOL [Concomitant]
     Dosage: UNK

REACTIONS (4)
  - Convulsion [Recovered/Resolved]
  - Vomiting [Recovered/Resolved]
  - Malaise [Recovered/Resolved]
  - Cold sweat [Recovered/Resolved]
